FAERS Safety Report 5472160-5 (Version None)
Quarter: 2007Q3

REPORT INFORMATION
  Report Type: 
  Country: None (occurrence: None)
  Receive Date: 20070928
  Receipt Date: 20070920
  Transmission Date: 20080115
  Serious: Yes (Other)
  Sender: FDA-Public Use
  Company Number: FR-GENENTECH-248149

PATIENT
  Sex: Female

DRUGS (10)
  1. RAPTIVA [Suspect]
     Indication: PSORIASIS
     Dosage: UNK, UNK
     Dates: start: 20060101
  2. DAIVOBET [Concomitant]
     Indication: PSORIASIS
  3. IBUPROFEN [Concomitant]
     Indication: PAIN
     Dosage: 200 UNK, QD
     Dates: start: 20070401
  4. ASCORBIC ACID [Concomitant]
     Indication: MINERAL SUPPLEMENTATION
     Dosage: 4 UNK, UNK
     Dates: start: 19950101
  5. CALCIUM [Concomitant]
     Indication: MINERAL SUPPLEMENTATION
     Dates: start: 19950101
  6. LEVOTHYROXINE SODIUM [Concomitant]
     Indication: THYROID DISORDER
     Dosage: 137.5 UNK, QD
     Dates: start: 19910101
  7. PRAZEPAM [Concomitant]
     Indication: ANXIETY DISORDER
     Dosage: UNK, BID
     Dates: start: 20020101
  8. RALOXIFENE HCL [Concomitant]
     Indication: HORMONE REPLACEMENT THERAPY
     Dosage: 60 UNK, QD
     Dates: start: 20030101
  9. SULPIRIDE [Concomitant]
     Indication: ANXIETY DISORDER
     Dosage: UNK, BID
     Dates: start: 20020101
  10. OMEPRAZOLE [Concomitant]
     Indication: COLITIS
     Dosage: 10 UNK, QD
     Dates: start: 19970101

REACTIONS (3)
  - HAEMATOMA [None]
  - INCREASED TENDENCY TO BRUISE [None]
  - PURPURA [None]
